FAERS Safety Report 8821771 (Version 1)
Quarter: 2012Q4

REPORT INFORMATION
  Report Type: 
  Country: FR (occurrence: FR)
  Receive Date: 20121002
  Receipt Date: 20121002
  Transmission Date: 20130627
  Serious: Yes (Hospitalization)
  Sender: FDA-Public Use
  Company Number: FR-WATSON-2012-16582

PATIENT
  Age: 56 Year
  Sex: Male

DRUGS (14)
  1. ATENOLOL [Suspect]
     Indication: PRODUCT USED FOR UNKNOWN INDICATION
     Dosage: 50 mg, daily
     Route: 048
     Dates: start: 20110912, end: 20110913
  2. CORDARONE [Suspect]
     Indication: PRODUCT USED FOR UNKNOWN INDICATION
     Dosage: 8 DF, daily
     Route: 048
     Dates: start: 20110827, end: 20110827
  3. CORDARONE [Suspect]
     Dosage: 4 DF, daily
     Route: 048
     Dates: start: 20110828, end: 20110829
  4. CORDARONE [Suspect]
     Dosage: 2 DF, daily
     Route: 048
     Dates: start: 20110830, end: 20110909
  5. CORDARONE [Suspect]
     Dosage: 1 DF, daily
     Route: 048
     Dates: start: 20110910
  6. CALCIPARINE [Suspect]
     Indication: PRODUCT USED FOR UNKNOWN INDICATION
     Dosage: 12500 UI/0.5 mL
     Route: 065
     Dates: start: 201109
  7. OFLOXACINE [Suspect]
     Indication: PRODUCT USED FOR UNKNOWN INDICATION
     Dosage: 2 DF, daily
     Route: 065
     Dates: start: 20110901, end: 20110910
  8. MIRCERA [Concomitant]
     Indication: PRODUCT USED FOR UNKNOWN INDICATION
     Dosage: 1 injection every 2 weeks
     Route: 065
  9. UN-ALFA [Concomitant]
     Indication: PRODUCT USED FOR UNKNOWN INDICATION
     Dosage: 1 DF, daily
     Route: 065
  10. RENAGEL                            /01459902/ [Concomitant]
     Indication: PRODUCT USED FOR UNKNOWN INDICATION
     Dosage: 2 DF, bid
     Route: 065
  11. CALCIDOSE                          /00751519/ [Concomitant]
     Indication: PRODUCT USED FOR UNKNOWN INDICATION
     Dosage: 2 DF, daily
     Route: 065
  12. INEXIUM /01479302/ [Concomitant]
     Indication: PRODUCT USED FOR UNKNOWN INDICATION
     Dosage: 20 mg, daily
     Route: 065
  13. FOLIC ACID [Concomitant]
     Indication: PRODUCT USED FOR UNKNOWN INDICATION
     Dosage: 5 mg, daily
     Route: 065
  14. SODIUM BICARBONATE [Concomitant]
     Indication: PRODUCT USED FOR UNKNOWN INDICATION
     Dosage: 1000 mg, daily
     Route: 065

REACTIONS (2)
  - Bradycardia [Recovered/Resolved]
  - Supraventricular extrasystoles [Recovered/Resolved]
